FAERS Safety Report 12849333 (Version 1)
Quarter: 2016Q4

REPORT INFORMATION
  Report Type: Spontaneous
  Country: US (occurrence: US)
  Receive Date: 20161014
  Receipt Date: 20161014
  Transmission Date: 20170207
  Serious: Yes (Other)
  Sender: FDA-Public Use
  Company Number: US-BAYER-2016-192658

PATIENT
  Age: 65 Year
  Sex: Female

DRUGS (1)
  1. BETASERON [Suspect]
     Active Substance: INTERFERON BETA-1B
     Dosage: UNK

REACTIONS (7)
  - Tinel^s sign [None]
  - Carpal tunnel syndrome [None]
  - Nuclear magnetic resonance imaging brain abnormal [None]
  - Hypoaesthesia [None]
  - Central nervous system lesion [None]
  - Intervertebral disc disorder [None]
  - Neurocysticercosis [None]
